FAERS Safety Report 10213634 (Version 2)
Quarter: 2014Q2

REPORT INFORMATION
  Report Type: Spontaneous
  Country: FR (occurrence: None)
  Receive Date: 20140530
  Receipt Date: 20140606
  Transmission Date: 20141212
  Serious: Yes (Death)
  Sender: FDA-Public Use
  Company Number: SP07869

PATIENT
  Age: 68 Year
  Sex: Male

DRUGS (3)
  1. OSMOPREP (TABLET) [Suspect]
     Indication: BOWEL PREPARATION
     Route: 048
     Dates: start: 20140414, end: 20140414
  2. SOTALOL (TABLET) [Concomitant]
  3. CRESTOR [Concomitant]

REACTIONS (3)
  - Upper gastrointestinal haemorrhage [None]
  - Large intestine polyp [None]
  - Aorto-duodenal fistula [None]
